FAERS Safety Report 9258214 (Version 1)
Quarter: 2013Q2

REPORT INFORMATION
  Report Type: Spontaneous
  Country: FR (occurrence: FR)
  Receive Date: 20130426
  Receipt Date: 20130426
  Transmission Date: 20140414
  Serious: Yes (Other)
  Sender: FDA-Public Use
  Company Number: FR-009507513-2011SP046917

PATIENT
  Age: 42 Year
  Sex: Female

DRUGS (2)
  1. IMPLANON [Suspect]
     Indication: CONTRACEPTION
     Dosage: UNK
     Dates: start: 2004, end: 20130130
  2. IMPLANON [Suspect]
     Dosage: UNK DF, UNK
     Route: 058
     Dates: end: 2011

REACTIONS (6)
  - Neuralgia [Recovered/Resolved]
  - Incorrect drug administration duration [Unknown]
  - Infertility female [Unknown]
  - Paraesthesia [Recovered/Resolved]
  - Medical device complication [Unknown]
  - Surgery [Unknown]
